FAERS Safety Report 6614300-8 (Version None)
Quarter: 2010Q1

REPORT INFORMATION
  Report Type: 
  Country: None (occurrence: None)
  Receive Date: 20100304
  Receipt Date: 20100218
  Transmission Date: 20100710
  Serious: Yes (Death)
  Sender: FDA-Public Use
  Company Number: DE-GENENTECH-266774

PATIENT
  Sex: Male

DRUGS (11)
  1. XOLAIR [Suspect]
     Indication: ASTHMA
     Dosage: 150 MG, 1/MONTH
     Route: 058
     Dates: start: 20080513
  2. XOLAIR [Suspect]
     Dosage: 300 MG, UNK
     Route: 058
     Dates: start: 20080528
  3. XOLAIR [Suspect]
     Dosage: 150 MG, UNK
     Route: 058
     Dates: start: 20080610
  4. XOLAIR [Suspect]
     Dosage: 300 MG, UNK
     Route: 058
     Dates: start: 20080625
  5. XOLAIR [Suspect]
     Dosage: 150 MG, UNK
     Route: 058
     Dates: start: 20080709
  6. XOLAIR [Suspect]
     Dosage: 300 MG, UNK
     Route: 058
     Dates: start: 20080721
  7. XOLAIR [Suspect]
     Dosage: 150 MG, UNK
     Route: 058
     Dates: start: 20080821
  8. DECORTIN-H [Concomitant]
     Indication: ASTHMA
     Dosage: UNK
     Dates: end: 20080801
  9. FORADIL [Concomitant]
     Indication: ASTHMA
  10. BUDESONIDE [Concomitant]
     Indication: ASTHMA
  11. SULTANOL [Concomitant]
     Indication: ASTHMA

REACTIONS (3)
  - ADRENAL INSUFFICIENCY [None]
  - IMMUNOSUPPRESSION [None]
  - NECROTISING COLITIS [None]
